FAERS Safety Report 9314958 (Version 2)
Quarter: 2013Q3

REPORT INFORMATION
  Report Type: Spontaneous
  Country: US (occurrence: US)
  Receive Date: 20130529
  Receipt Date: 20130827
  Transmission Date: 20140515
  Serious: Yes (Death, Hospitalization, Disabling)
  Sender: FDA-Public Use
  Company Number: US-B.I. PHARMACEUTICALS,INC./RIDGEFIELD-2013-BI-14633BP

PATIENT
  Age: 69 Year
  Sex: Male

DRUGS (54)
  1. SPIRIVA [Suspect]
     Indication: CHRONIC OBSTRUCTIVE PULMONARY DISEASE
     Dosage: 18 MCG
     Route: 055
     Dates: start: 2009
  2. WARFARIN [Concomitant]
     Dosage: 1 ANZ
  3. LASIX [Concomitant]
     Dosage: 160 MG
  4. COUMADIN [Concomitant]
     Dosage: 5 MG
  5. KEFLEX [Concomitant]
     Dosage: 1500 MG
  6. KEFLEX [Concomitant]
     Dosage: 1500 MG
  7. ACETAZOLAMIDE [Concomitant]
     Dosage: 1/2 PER DAY; DAILY DOSE-125 MG
  8. ALBUTEROL [Concomitant]
     Dosage: 12 ML
  9. COMBIVENT [Concomitant]
     Dosage: 90 MCG-18 MCG WITH ADAPTER 2 PUFF(S)
     Route: 055
  10. MIRALAX [Concomitant]
     Dosage: 17 G
  11. COLACE SODIUM [Concomitant]
     Dosage: 100 MG
  12. LORAZEPAM [Concomitant]
     Dosage: 1 MG
  13. COREG [Concomitant]
  14. DOXYCYCLINE [Concomitant]
     Dosage: 200 MG
  15. MEDROL [Concomitant]
  16. CEFUROXIME [Concomitant]
     Dosage: 1000 MG
  17. PREDNISONE [Concomitant]
     Dosage: 20 MG
  18. PREDNISONE [Concomitant]
     Dosage: 1 ANZ
  19. NOVOLOG MIX [Concomitant]
     Dosage: 30 UNITS - 70 UNITS PM AND 6 - 8 UNITS BEFORE LUNCH
  20. NOVOLOG MIX [Concomitant]
     Dosage: 70/30 FLEXPEN 30 UNITS TO 70 UNITS/ML SUSPENSION 27 UNITS AM 24 UNITS PM AND 6-8 UNITS BEFORE LUNCH
  21. NOVOLOG MIX [Concomitant]
     Dosage: MIX 70/30 30 UNITS/ML SUSPENSION 22UNITSAM 16 U PM
  22. LORTAB [Concomitant]
     Dosage: 500 MG-10 MG
  23. AVODART [Concomitant]
     Dosage: 1 ANZ
  24. MUPIROCIN TOPICAL 2% OINTMENT [Concomitant]
     Dosage: 3 ANZ
     Route: 061
  25. ALDACTONE [Concomitant]
     Dosage: 25 MG
  26. FLOVENT HFA CFC FREE [Concomitant]
     Dosage: 220 MCG
     Route: 055
  27. PRILOSEC [Concomitant]
     Dosage: 20 MG
  28. PRO AIR HFA [Concomitant]
     Dosage: 360 MCG
  29. LANOXIN [Concomitant]
     Dosage: 125 MCG
  30. LIPITOR [Concomitant]
     Dosage: 20 MG
  31. INTERGRA PLUS [Concomitant]
  32. LOTRISON [Concomitant]
     Dosage: 0.05%-1% CREAM 1 APP
  33. MAGNESIUM [Concomitant]
     Dosage: 400 MG
  34. RELION PEN 29G/12 M M [Concomitant]
  35. FLOMAX [Concomitant]
     Dosage: 0.4 MG
  36. LISINOPRIL [Concomitant]
  37. LISINOPRIL [Concomitant]
  38. MILLIPRED [Concomitant]
     Dosage: 5 MG
  39. HUMALOG PEN [Concomitant]
     Dosage: FORMULATION: INJECTION; DOSE PER APPLICATION: 100 U/ML INJECTION
  40. VENTOLIN HFA CSC FREE [Concomitant]
     Route: 055
  41. VITAMIN D3 [Concomitant]
     Dosage: 2000 U
  42. PERFOROMIST [Concomitant]
     Dosage: 20 MCG
  43. IPRATROPIUM 0.02% [Concomitant]
     Dosage: 9 ML
  44. PREDNISON [Concomitant]
  45. POTASSIUM CHLORIDE [Concomitant]
     Dosage: 10 MEQ
  46. NYSTATIN [Concomitant]
  47. CORTISPORIN OTIC [Concomitant]
     Dosage: 1%-0.35%-10000 UNITS/ML
  48. NOVO FINE [Concomitant]
     Dosage: 30 GAUGE X 1/3 AS DIRECTED
  49. NEBULIZER MACHINE DX [Concomitant]
     Indication: CHRONIC OBSTRUCTIVE PULMONARY DISEASE
  50. NEBULIZER MACHINE DX [Concomitant]
     Indication: BRONCHITIS
  51. CO ENZYME Q 10 [Concomitant]
     Dosage: 100 MG
  52. CPAP [Concomitant]
     Indication: SLEEP STUDY
     Dosage: 7 CM PRESSURE WITH O2
  53. OXYGEN 2 LITER [Concomitant]
  54. ASA [Concomitant]
     Dosage: 81 MG

REACTIONS (2)
  - Respiratory failure [Fatal]
  - Pneumonia bacterial [Fatal]
